FAERS Safety Report 22160532 (Version 1)
Quarter: 2023Q1

REPORT INFORMATION
  Report Type: Spontaneous
  Country: US (occurrence: US)
  Receive Date: 20230331
  Receipt Date: 20230331
  Transmission Date: 20230417
  Serious: Yes (Hospitalization)
  Sender: FDA-Public Use
  Company Number: US-BAYER-2023A036954

PATIENT
  Age: 40 Year
  Sex: Female

DRUGS (1)
  1. KYLEENA [Suspect]
     Active Substance: LEVONORGESTREL
     Indication: Contraception
     Dosage: 17.5?G/DAY
     Route: 015
     Dates: start: 20200327

REACTIONS (2)
  - Ectopic pregnancy with contraceptive device [Unknown]
  - Drug ineffective [None]

NARRATIVE: CASE EVENT DATE: 20230306
